FAERS Safety Report 4810773-1 (Version None)
Quarter: 2005Q4

REPORT INFORMATION
  Report Type: 
  Country: None (occurrence: None)
  Receive Date: 20051024
  Receipt Date: 20051013
  Transmission Date: 20060501
  Serious: Yes (Other)
  Sender: FDA-Public Use
  Company Number: 2005142846

PATIENT
  Age: 59 Year
  Sex: Male
  Weight: 108.8633 kg

DRUGS (8)
  1. TIKOSYN [Suspect]
     Indication: ATRIAL FIBRILLATION
     Dosage: 750 MCG (2 IN 1 D)
     Dates: start: 19940101
  2. DIGOXIN [Concomitant]
  3. DILTIAZEM [Concomitant]
  4. SPIRONOLACTONE [Concomitant]
  5. NICOTINAMIDE [Concomitant]
  6. ASPIRIN [Concomitant]
  7. LISINOPRIL [Concomitant]
  8. VITAMINS (VITAMINS) [Concomitant]

REACTIONS (1)
  - PANCREATITIS [None]
